FAERS Safety Report 10793376 (Version 1)
Quarter: 2015Q1

REPORT INFORMATION
  Report Type: Spontaneous
  Country: US (occurrence: None)
  Receive Date: 20150212
  Receipt Date: 20150212
  Transmission Date: 20150721
  Serious: Yes (Other)
  Sender: FDA-Public Use
  Company Number: None

PATIENT
  Age: 74 Year
  Sex: Male

DRUGS (2)
  1. CARVEDILOL. [Concomitant]
     Active Substance: CARVEDILOL
  2. ENALAPRIL 5MG MYLAN [Suspect]
     Active Substance: ENALAPRIL
     Indication: HYPERTENSION
     Dosage: 1/2 TABLET 5 TIMES DAILY ORAL
     Route: 048
     Dates: start: 20141112, end: 20150209

REACTIONS (1)
  - Blood pressure abnormal [None]

NARRATIVE: CASE EVENT DATE: 20150209
